FAERS Safety Report 21813212 (Version 1)
Quarter: 2023Q1

REPORT INFORMATION
  Report Type: Spontaneous
  Country: US (occurrence: US)
  Receive Date: 20230103
  Receipt Date: 20230103
  Transmission Date: 20230418
  Serious: No
  Sender: FDA-Public Use
  Company Number: US-INCYTE CORPORATION-2022IN012759

PATIENT

DRUGS (2)
  1. JAKAFI [Suspect]
     Active Substance: RUXOLITINIB
     Route: 065
  2. REZUROCK [Suspect]
     Active Substance: BELUMOSUDIL
     Route: 065

REACTIONS (1)
  - COVID-19 [Unknown]
